FAERS Safety Report 15864999 (Version 1)
Quarter: 2019Q1

REPORT INFORMATION
  Report Type: Spontaneous
  Country: US (occurrence: US)
  Receive Date: 20190124
  Receipt Date: 20190124
  Transmission Date: 20190417
  Serious: Yes (Other)
  Sender: FDA-Public Use
  Company Number: US-AQUESTIVE THERAPEUTICS, INC.-2019AQU00002

PATIENT
  Sex: Female

DRUGS (1)
  1. SYMPAZAN [Suspect]
     Active Substance: CLOBAZAM

REACTIONS (2)
  - Chest pain [Unknown]
  - Fall [Unknown]
